FAERS Safety Report 13023957 (Version 1)
Quarter: 2016Q4

REPORT INFORMATION
  Report Type: Spontaneous
  Country: JP (occurrence: JP)
  Receive Date: 20161213
  Receipt Date: 20161213
  Transmission Date: 20170207
  Serious: Yes (Death)
  Sender: FDA-Public Use
  Company Number: JP-JNJFOC-20161209372

PATIENT
  Age: 24 Year
  Sex: Female

DRUGS (4)
  1. RISPERDAL [Suspect]
     Active Substance: RISPERIDONE
     Indication: PRODUCT USED FOR UNKNOWN INDICATION
     Dosage: DRUG STARTED SEVEN YEARS BEFORE THE DATE OF THIS REPORT
     Route: 048
  2. ROHYPNOL [Suspect]
     Active Substance: FLUNITRAZEPAM
     Indication: PRODUCT USED FOR UNKNOWN INDICATION
     Dosage: DRUG STARTED SEVEN YEARS BEFORE THE DATE OF THIS REPORT
     Route: 065
  3. CHLORPROMAZINE AND PROMETHAZINE [Suspect]
     Active Substance: CHLORPROMAZINE\PROMETHAZINE
     Indication: PRODUCT USED FOR UNKNOWN INDICATION
     Dosage: DRUG STARTED SEVEN YEARS BEFORE THE DATE OF THIS REPORT
     Route: 065
  4. PHENOBARBITAL. [Suspect]
     Active Substance: PHENOBARBITAL
     Indication: PRODUCT USED FOR UNKNOWN INDICATION
     Dosage: DRUG STARTED SEVEN YEARS BEFORE THE DATE OF THIS REPORT
     Route: 065

REACTIONS (1)
  - Death [Fatal]
